FAERS Safety Report 25818975 (Version 5)
Quarter: 2025Q4

REPORT INFORMATION
  Report Type: Spontaneous
  Country: BR (occurrence: BR)
  Receive Date: 20250918
  Receipt Date: 20251027
  Transmission Date: 20260117
  Serious: Yes (Hospitalization)
  Sender: SANOFI AVENTIS
  Company Number: BR-SANOFI-02649483

PATIENT
  Age: 20 Year
  Sex: Male

DRUGS (6)
  1. LANTUS [Suspect]
     Active Substance: INSULIN GLARGINE
     Indication: Type 1 diabetes mellitus
     Dosage: 17 IU, QD
     Route: 065
     Dates: start: 2023
  2. HUMALOG [Concomitant]
     Active Substance: INSULIN LISPRO
     Indication: Diabetes mellitus
     Dosage: ADMINISTER 6 IU BEFORE BREAKFAST, 4 IU BEFORE LUNCH AND 6 IU BEFORE DINNER
     Dates: start: 202509
  3. PAXIL CR [Concomitant]
     Active Substance: PAROXETINE HYDROCHLORIDE
     Indication: Anxiety
     Dosage: 1 TABLET PER DAY AFTER BREAKFAST
     Route: 048
     Dates: start: 2024
  4. PAXIL CR [Concomitant]
     Active Substance: PAROXETINE HYDROCHLORIDE
     Indication: Depression
  5. ALPRAZOLAM [Concomitant]
     Active Substance: ALPRAZOLAM
     Indication: Anxiety
     Dosage: 1 TABLET PER DAY
     Route: 048
     Dates: start: 2024
  6. ALPRAZOLAM [Concomitant]
     Active Substance: ALPRAZOLAM
     Indication: Depression

REACTIONS (8)
  - Fall [Unknown]
  - Ligament sprain [Unknown]
  - Hyperglycaemia [Not Recovered/Not Resolved]
  - Dizziness [Not Recovered/Not Resolved]
  - Sensitive skin [Not Recovered/Not Resolved]
  - Food craving [Recovered/Resolved]
  - Skin exfoliation [Not Recovered/Not Resolved]
  - Device leakage [Unknown]

NARRATIVE: CASE EVENT DATE: 20250801
